FAERS Safety Report 11250329 (Version 1)
Quarter: 2015Q3

REPORT INFORMATION
  Report Type: Spontaneous
  Country: US (occurrence: US)
  Receive Date: 20150708
  Receipt Date: 20150708
  Transmission Date: 20151125
  Serious: Yes (Other)
  Sender: FDA-Public Use
  Company Number: US-ELI_LILLY_AND_COMPANY-US200909003580

PATIENT
  Age: 21 Year
  Sex: Male
  Weight: 83.45 kg

DRUGS (3)
  1. WELLBUTRIN [Concomitant]
     Active Substance: BUPROPION HYDROCHLORIDE
     Dosage: 150 MG, UNK
     Dates: end: 20090908
  2. LEXAPRO [Concomitant]
     Active Substance: ESCITALOPRAM OXALATE
     Dosage: 20 MG, UNK
     Dates: end: 20090908
  3. SYMBYAX [Suspect]
     Active Substance: FLUOXETINE HYDROCHLORIDE\OLANZAPINE
     Dosage: 1 D/F, UNK
     Dates: start: 20090909, end: 20090909

REACTIONS (4)
  - Depression [Unknown]
  - Blood pressure increased [Unknown]
  - Seizure [Unknown]
  - Anxiety [Unknown]

NARRATIVE: CASE EVENT DATE: 20090910
